FAERS Safety Report 18916225 (Version 1)
Quarter: 2021Q1

REPORT INFORMATION
  Report Type: Spontaneous
  Country: US (occurrence: US)
  Receive Date: 20210219
  Receipt Date: 20210219
  Transmission Date: 20210420
  Serious: Yes (Other)
  Sender: FDA-Public Use
  Company Number: US-PURDUE-USA-2021-0213402

PATIENT
  Age: 19 Year
  Sex: Female
  Weight: 58 kg

DRUGS (3)
  1. SALINE                             /00075401/ [Suspect]
     Active Substance: SODIUM CHLORIDE
     Indication: PRODUCT USED FOR UNKNOWN INDICATION
     Dosage: 3.5 L, SINGLE [ON THE FIRST DAY OF SURGERY]
     Route: 065
  2. PROMETHAZINE [Suspect]
     Active Substance: PROMETHAZINE HYDROCHLORIDE
     Indication: NAUSEA
     Dosage: UNK
     Route: 065
  3. NON?PMN MORPHINE SULFATE [Suspect]
     Active Substance: MORPHINE SULFATE
     Indication: PAIN
     Dosage: UNK
     Route: 042

REACTIONS (10)
  - Hyponatraemia [Recovering/Resolving]
  - Apnoea [Unknown]
  - Brain oedema [Unknown]
  - Confusional state [Unknown]
  - Pulmonary oedema [Unknown]
  - Inappropriate antidiuretic hormone secretion [Unknown]
  - Blood osmolarity decreased [Unknown]
  - Nuchal rigidity [Unknown]
  - Pupils unequal [Unknown]
  - Aggression [Unknown]
